FAERS Safety Report 7264927-8 (Version None)
Quarter: 2011Q1

REPORT INFORMATION
  Report Type: 
  Country: None (occurrence: None)
  Receive Date: 20110131
  Receipt Date: 20101123
  Transmission Date: 20110831
  Serious: No
  Sender: FDA-Public Use
  Company Number: US-BAYER-201038473NA

PATIENT
  Sex: Female

DRUGS (6)
  1. MOTRIN [Concomitant]
     Indication: PRODUCT USED FOR UNKNOWN INDICATION
  2. YAZ [Suspect]
     Indication: CONTRACEPTION
  3. IBUPROFEN [Concomitant]
     Indication: PRODUCT USED FOR UNKNOWN INDICATION
  4. YAZ [Suspect]
     Indication: ACNE
     Dosage: UNK
     Dates: start: 20040101, end: 20060101
  5. OCELLA [Suspect]
     Indication: ACNE
  6. YASMIN [Suspect]
     Indication: ACNE

REACTIONS (7)
  - HYPERHIDROSIS [None]
  - FLANK PAIN [None]
  - CALCULUS URINARY [None]
  - HYDRONEPHROSIS [None]
  - POLLAKIURIA [None]
  - PYURIA [None]
  - PYREXIA [None]
